FAERS Safety Report 18902414 (Version 2)
Quarter: 2021Q1

REPORT INFORMATION
  Report Type: Report from Study
  Country: US (occurrence: US)
  Receive Date: 20210216
  Receipt Date: 20210306
  Transmission Date: 20210420
  Serious: No
  Sender: FDA-Public Use
  Company Number: NVSC2021US030752

PATIENT
  Sex: Male

DRUGS (1)
  1. ENTRESTO [Suspect]
     Active Substance: SACUBITRIL\VALSARTAN
     Indication: PRODUCT USED FOR UNKNOWN INDICATION
     Dosage: 100 MG, BID (49/51 MG)
     Route: 048
     Dates: start: 201906

REACTIONS (4)
  - Wrist fracture [Unknown]
  - Pain [Unknown]
  - Fall [Unknown]
  - Hand fracture [Not Recovered/Not Resolved]
